FAERS Safety Report 8909319 (Version 1)
Quarter: 2012Q4

REPORT INFORMATION
  Report Type: Spontaneous
  Country: US (occurrence: None)
  Receive Date: 20121102
  Receipt Date: 20121102
  Transmission Date: 20130627
  Serious: Yes (Other)
  Sender: FDA-Public Use
  Company Number: 2012033736

PATIENT
  Age: 41 Year
  Sex: Female

DRUGS (4)
  1. IVIG [Suspect]
     Dosage: (Intravenous (not otherwise specified))
     Route: 042
  2. IVIG [Suspect]
     Dosage: (Intravenous (not otherwise specified))
     Route: 042
  3. IVIG [Suspect]
     Dosage: (Intravenous (not otherwise specified))
     Route: 042
  4. PREDNISONE (PREDNISONE) [Suspect]
     Route: 048

REACTIONS (7)
  - Drug intolerance [None]
  - Upper respiratory tract infection [None]
  - Nervousness [None]
  - Idiopathic thrombocytopenic purpura [None]
  - No therapeutic response [None]
  - Dyspepsia [None]
  - Graft versus host disease [None]
